FAERS Safety Report 24055560 (Version 1)
Quarter: 2024Q3

REPORT INFORMATION
  Report Type: Spontaneous
  Country: US (occurrence: US)
  Receive Date: 20240705
  Receipt Date: 20240705
  Transmission Date: 20241016
  Serious: Yes (Other)
  Sender: ELI LILLY AND CO
  Company Number: US-ELI_LILLY_AND_COMPANY-US202406019224

PATIENT
  Sex: Female

DRUGS (16)
  1. MOUNJARO [Suspect]
     Active Substance: TIRZEPATIDE
     Indication: Glucose tolerance impaired
     Dosage: 15 MG, UNKNOWN
     Route: 065
     Dates: start: 2023
  2. MOUNJARO [Suspect]
     Active Substance: TIRZEPATIDE
     Indication: Glucose tolerance impaired
     Dosage: 15 MG, UNKNOWN
     Route: 065
     Dates: start: 2023
  3. MOUNJARO [Suspect]
     Active Substance: TIRZEPATIDE
     Indication: Glucose tolerance impaired
     Dosage: 15 MG, UNKNOWN
     Route: 065
     Dates: start: 2023
  4. MOUNJARO [Suspect]
     Active Substance: TIRZEPATIDE
     Indication: Glucose tolerance impaired
     Dosage: 15 MG, UNKNOWN
     Route: 065
     Dates: start: 2023
  5. MOUNJARO [Suspect]
     Active Substance: TIRZEPATIDE
     Indication: Hypertension
  6. MOUNJARO [Suspect]
     Active Substance: TIRZEPATIDE
     Indication: Hypertension
  7. MOUNJARO [Suspect]
     Active Substance: TIRZEPATIDE
     Indication: Hypertension
  8. MOUNJARO [Suspect]
     Active Substance: TIRZEPATIDE
     Indication: Hypertension
  9. MOUNJARO [Suspect]
     Active Substance: TIRZEPATIDE
     Indication: Blood cholesterol increased
  10. MOUNJARO [Suspect]
     Active Substance: TIRZEPATIDE
     Indication: Blood cholesterol increased
  11. MOUNJARO [Suspect]
     Active Substance: TIRZEPATIDE
     Indication: Blood cholesterol increased
  12. MOUNJARO [Suspect]
     Active Substance: TIRZEPATIDE
     Indication: Blood cholesterol increased
  13. MOUNJARO [Suspect]
     Active Substance: TIRZEPATIDE
     Indication: Weight control
  14. MOUNJARO [Suspect]
     Active Substance: TIRZEPATIDE
     Indication: Weight control
  15. MOUNJARO [Suspect]
     Active Substance: TIRZEPATIDE
     Indication: Weight control
  16. MOUNJARO [Suspect]
     Active Substance: TIRZEPATIDE
     Indication: Weight control

REACTIONS (2)
  - Eye disorder [Unknown]
  - Off label use [Unknown]

NARRATIVE: CASE EVENT DATE: 20230101
